FAERS Safety Report 9749982 (Version 1)
Quarter: 2013Q4

REPORT INFORMATION
  Report Type: Report from Study
  Country: BR (occurrence: BR)
  Receive Date: 20131212
  Receipt Date: 20131212
  Transmission Date: 20140711
  Serious: Yes (Death, Hospitalization, Other)
  Sender: FDA-Public Use
  Company Number: PHHY2013BR145743

PATIENT
  Sex: Male
  Weight: 74 kg

DRUGS (2)
  1. DIOVAN HCT [Suspect]
     Indication: BLOOD PRESSURE
     Dosage: 1 DF, (320/12,5 MG) A DAY
     Route: 048
     Dates: start: 201310, end: 20131030
  2. SOMALGIN [Concomitant]

REACTIONS (3)
  - Cardiac arrest [Fatal]
  - Nosocomial infection [Unknown]
  - Pleural effusion [Unknown]
